FAERS Safety Report 17545503 (Version 2)
Quarter: 2022Q1

REPORT INFORMATION
  Report Type: Spontaneous
  Country: CH (occurrence: CH)
  Receive Date: 20200316
  Receipt Date: 20220202
  Transmission Date: 20220423
  Serious: Yes (Congenital Anomaly, Other)
  Sender: FDA-Public Use
  Company Number: CH-SM-2020-11315

PATIENT
  Age: 0 Year
  Sex: Female

DRUGS (13)
  1. ATENOLOL [Suspect]
     Active Substance: ATENOLOL
     Route: 064
  2. AMOXICILLIN\CLAVULANATE POTASSIUM [Suspect]
     Active Substance: AMOXICILLIN\CLAVULANATE POTASSIUM
     Route: 064
  3. VALPROATE SODIUM [Suspect]
     Active Substance: VALPROATE SODIUM
     Indication: Bipolar disorder
     Route: 064
     Dates: start: 200709
  4. HALDOL [Suspect]
     Active Substance: HALOPERIDOL
     Route: 064
  5. REMERON [Suspect]
     Active Substance: MIRTAZAPINE
     Route: 064
     Dates: start: 2006
  6. ECONAZOLE NITRATE [Suspect]
     Active Substance: ECONAZOLE NITRATE
     Route: 064
  7. LORAZEPAM [Suspect]
     Active Substance: LORAZEPAM
     Dosage: OVERDOSE
     Route: 064
  8. VALIUM [Suspect]
     Active Substance: DIAZEPAM
     Route: 064
  9. BUSPIRONE HYDROCHLORIDE [Suspect]
     Active Substance: BUSPIRONE HYDROCHLORIDE
     Route: 064
  10. TRAZODONE HYDROCHLORIDE [Suspect]
     Active Substance: TRAZODONE HYDROCHLORIDE
     Route: 064
  11. PIPAMPERONE [Suspect]
     Active Substance: PIPAMPERONE
     Route: 064
  12. MINERALS\VITAMINS [Concomitant]
     Active Substance: MINERALS\VITAMINS
     Route: 064
  13. Eisen [Concomitant]
     Route: 064

REACTIONS (4)
  - Meningomyelocele [Not Recovered/Not Resolved]
  - Hydrocephalus [Not Recovered/Not Resolved]
  - Developmental delay [Not Recovered/Not Resolved]
  - Foetal exposure during pregnancy [Unknown]

NARRATIVE: CASE EVENT DATE: 20080719
